FAERS Safety Report 6696464-3 (Version None)
Quarter: 2010Q2

REPORT INFORMATION
  Report Type: 
  Country: None (occurrence: None)
  Receive Date: 20100426
  Receipt Date: 20100414
  Transmission Date: 20101027
  Serious: Yes (Hospitalization)
  Sender: FDA-Public Use
  Company Number: JP-ROCHE-698285

PATIENT
  Age: 67 Year
  Sex: Male

DRUGS (2)
  1. PEGASYS [Suspect]
     Dosage: NOTE: DOSAGE IS UNCERTAIN.
     Route: 058
     Dates: start: 20090604, end: 20090812
  2. COPEGUS [Suspect]
     Route: 048
     Dates: start: 20090604, end: 20090812

REACTIONS (2)
  - CRYOGLOBULINAEMIA [None]
  - MONONEUROPATHY MULTIPLEX [None]
